FAERS Safety Report 15596016 (Version 3)
Quarter: 2019Q1

REPORT INFORMATION
  Report Type: Spontaneous
  Country: JP (occurrence: JP)
  Receive Date: 20181107
  Receipt Date: 20190228
  Transmission Date: 20190417
  Serious: Yes (Hospitalization, Other)
  Sender: FDA-Public Use
  Company Number: JP-BRISTOL-MYERS SQUIBB COMPANY-BMS-2018-103702

PATIENT
  Age: 51 Year
  Sex: Female
  Weight: 63.8 kg

DRUGS (7)
  1. METFORMIN HYDROCHLORIDE. [Suspect]
     Active Substance: METFORMIN HYDROCHLORIDE
     Indication: PANCREATIC CARCINOMA
     Dosage: 2250 MG, QD
     Route: 065
     Dates: start: 20181002, end: 20181021
  2. OXYCODONE [Suspect]
     Active Substance: OXYCODONE
     Indication: CANCER PAIN
     Dosage: 5 MG, Q12H
     Route: 048
     Dates: start: 20181022
  3. OXINORM                            /00045603/ [Suspect]
     Active Substance: OXYCODONE HYDROCHLORIDE
     Indication: CANCER PAIN
     Dosage: 1 DF, PRN
     Route: 048
     Dates: start: 20181017
  4. ELIQUIS [Concomitant]
     Active Substance: APIXABAN
     Indication: PRODUCT USED FOR UNKNOWN INDICATION
     Dosage: UNK
     Route: 065
     Dates: start: 2018
  5. CELECOX [Concomitant]
     Active Substance: CELECOXIB
     Indication: PRODUCT USED FOR UNKNOWN INDICATION
     Dosage: UNK
     Route: 065
     Dates: start: 20181022
  6. OXYCODONE [Suspect]
     Active Substance: OXYCODONE
     Indication: PRODUCT USED FOR UNKNOWN INDICATION
     Dosage: UNK
     Route: 048
     Dates: start: 20181026
  7. NIVOLUMAB [Suspect]
     Active Substance: NIVOLUMAB
     Indication: PANCREATIC CARCINOMA
     Dosage: 216.6 MG, UNK
     Route: 041
     Dates: start: 20181002

REACTIONS (7)
  - Vomiting [Unknown]
  - Condition aggravated [Unknown]
  - Nausea [Recovered/Resolved]
  - Cancer pain [Unknown]
  - Product use in unapproved indication [Unknown]
  - Jaundice cholestatic [Unknown]
  - Thyroiditis [Unknown]

NARRATIVE: CASE EVENT DATE: 20181002
